FAERS Safety Report 20213351 (Version 1)
Quarter: 2021Q4

REPORT INFORMATION
  Report Type: Spontaneous
  Country: US (occurrence: None)
  Receive Date: 20211221
  Receipt Date: 20211221
  Transmission Date: 20220303
  Serious: Yes (Hospitalization)
  Sender: FDA-Public Use
  Company Number: None

PATIENT
  Sex: Female

DRUGS (9)
  1. DALFAMPRIDINE [Suspect]
     Active Substance: DALFAMPRIDINE
     Indication: Multiple sclerosis
     Dosage: OTHER FREQUENCY : BID - EVERY 12 HRS;?
     Route: 048
     Dates: start: 20190702
  2. DALFAMPRIDINE [Suspect]
     Active Substance: DALFAMPRIDINE
     Dosage: OTHER FREQUENCY : BID - EVERY 12HRS;?
     Route: 048
  3. ATORVASATIN [Concomitant]
  4. CBD KINGS DIS W/LIDO [Concomitant]
  5. GABAPENTIN [Concomitant]
  6. KLONOPIN [Concomitant]
     Active Substance: CLONAZEPAM
  7. NALTREXONE HYDROCHLORIDE [Concomitant]
     Active Substance: NALTREXONE HYDROCHLORIDE
  8. OCREVUS [Concomitant]
     Active Substance: OCRELIZUMAB
  9. ZOLOFT [Concomitant]
     Active Substance: SERTRALINE HYDROCHLORIDE

REACTIONS (3)
  - Fall [None]
  - Movement disorder [None]
  - COVID-19 [None]
